FAERS Safety Report 26120014 (Version 2)
Quarter: 2025Q4

REPORT INFORMATION
  Report Type: Spontaneous
  Country: US (occurrence: US)
  Receive Date: 20251204
  Receipt Date: 20251209
  Transmission Date: 20260117
  Serious: Yes (Life-Threatening, Hospitalization, Other)
  Sender: RANBAXY
  Company Number: US-SUN PHARMACEUTICAL INDUSTRIES LTD-2025R1-539370

PATIENT
  Age: 59 Year
  Sex: Female

DRUGS (2)
  1. ACETAMINOPHEN [Suspect]
     Active Substance: ACETAMINOPHEN
     Indication: Product used for unknown indication
     Dosage: 162500 MILLIGRAM
     Route: 065
  2. NAPROXEN [Suspect]
     Active Substance: NAPROXEN
     Indication: Thoracic spinal stenosis
     Dosage: UNK, DAILY
     Route: 065

REACTIONS (3)
  - Ulcer haemorrhage [Recovering/Resolving]
  - Intentional overdose [Recovering/Resolving]
  - Gastric ulcer [Recovering/Resolving]
